FAERS Safety Report 6100285-X (Version None)
Quarter: 2009Q1

REPORT INFORMATION
  Report Type: 
  Country: None (occurrence: None)
  Receive Date: 20090303
  Receipt Date: 20090223
  Transmission Date: 20090719
  Serious: No
  Sender: FDA-Public Use
  Company Number: US-ABBOTT-09P-163-0498114-00

PATIENT
  Sex: Male
  Weight: 86.26 kg

DRUGS (3)
  1. HUMIRA [Suspect]
     Indication: PSORIASIS
     Dates: start: 20080901, end: 20081001
  2. HUMIRA [Suspect]
     Dates: start: 20081001, end: 20081101
  3. HUMIRA [Suspect]
     Dates: start: 20081201

REACTIONS (1)
  - SINUSITIS [None]
